FAERS Safety Report 6977941-4 (Version None)
Quarter: 2010Q3

REPORT INFORMATION
  Report Type: 
  Country: None (occurrence: None)
  Receive Date: 20100913
  Receipt Date: 20100903
  Transmission Date: 20110219
  Serious: Yes (Other)
  Sender: FDA-Public Use
  Company Number: CA-PFIZER INC-2010111661

PATIENT
  Age: 40 Year
  Sex: Male

DRUGS (1)
  1. VIAGRA [Suspect]
     Dosage: 25 MG, (1/4 OF 100 MG TABLET)
     Dates: end: 20100801

REACTIONS (4)
  - METAMORPHOPSIA [None]
  - NASAL CONGESTION [None]
  - VISION BLURRED [None]
  - VISUAL IMPAIRMENT [None]
